FAERS Safety Report 10198892 (Version 1)
Quarter: 2014Q2

REPORT INFORMATION
  Report Type: Spontaneous
  Country: US (occurrence: US)
  Receive Date: 20140527
  Receipt Date: 20140527
  Transmission Date: 20141212
  Serious: No
  Sender: FDA-Public Use
  Company Number: US-NOVEN-13US007694

PATIENT
  Age: 6 Year
  Sex: Female

DRUGS (3)
  1. DAYTRANA [Suspect]
     Indication: ATTENTION DEFICIT/HYPERACTIVITY DISORDER
     Dosage: 15 MG, ON SCHOOL DAYS
     Route: 062
  2. DAYTRANA [Suspect]
     Dosage: 15 MG, ON SCHOOL DAYS
     Route: 062
     Dates: start: 2013, end: 2013
  3. DAYTRANA [Suspect]
     Dosage: 10 MG, ON SCHOOL DAYS
     Route: 062
     Dates: start: 2013, end: 2013

REACTIONS (5)
  - Decreased appetite [Unknown]
  - Incorrect drug administration duration [Unknown]
  - Drug administered at inappropriate site [Unknown]
  - Drug prescribing error [Not Recovered/Not Resolved]
  - Product quality issue [Not Recovered/Not Resolved]
